FAERS Safety Report 8090476-3 (Version None)
Quarter: 2012Q1

REPORT INFORMATION
  Report Type: 
  Country: None (occurrence: None)
  Receive Date: 20120129
  Receipt Date: 20111118
  Transmission Date: 20120608
  Serious: No
  Sender: FDA-Public Use
  Company Number: US-ABBOTT-11P-163-0876221-00

PATIENT
  Sex: Male
  Weight: 77.18 kg

DRUGS (4)
  1. IMURAN [Concomitant]
     Indication: COLITIS ULCERATIVE
  2. HUMIRA [Suspect]
     Indication: COLITIS ULCERATIVE
     Dates: start: 20111115
  3. PREDNISONE TAB [Concomitant]
     Indication: COLITIS ULCERATIVE
  4. ASACOL [Concomitant]
     Indication: COLITIS ULCERATIVE

REACTIONS (3)
  - OFF LABEL USE [None]
  - POOR QUALITY DRUG ADMINISTERED [None]
  - INCORRECT STORAGE OF DRUG [None]
